FAERS Safety Report 4385912-X (Version None)
Quarter: 2004Q2

REPORT INFORMATION
  Report Type: 
  Country: None (occurrence: None)
  Receive Date: 20040622
  Receipt Date: 20040610
  Transmission Date: 20050107
  Serious: Yes (Hospitalization)
  Sender: FDA-Public Use
  Company Number: MK200406-0116-1

PATIENT
  Age: 72 Year
  Sex: Male

DRUGS (2)
  1. ANAFRANIL [Suspect]
     Dosage: 50 MG, DAILY
  2. PAXIL [Suspect]
     Dosage: 20 MG, DAILY

REACTIONS (2)
  - DELIRIUM [None]
  - INAPPROPRIATE ANTIDIURETIC HORMONE SECRETION [None]
